FAERS Safety Report 20907839 (Version 3)
Quarter: 2023Q2

REPORT INFORMATION
  Report Type: Report from Study
  Country: CA (occurrence: CA)
  Receive Date: 20220602
  Receipt Date: 20230518
  Transmission Date: 20230721
  Serious: Yes (Other)
  Sender: FDA-Public Use
  Company Number: CA-JAZZ-2022-CA-018275

PATIENT
  Sex: Female

DRUGS (7)
  1. XYREM [Suspect]
     Active Substance: SODIUM OXYBATE
     Indication: Narcolepsy
     Dosage: 4.5 GRAM, BID, TWO EQUAL
     Route: 048
     Dates: start: 2007
  2. XYREM [Suspect]
     Active Substance: SODIUM OXYBATE
     Dosage: DOSE : 6G FREQUENCY : TWO EQUAL
     Route: 048
     Dates: start: 2008
  3. MODAFINIL [Concomitant]
     Active Substance: MODAFINIL
     Dosage: DOSE : 6G FREQUENCY : TWO EQUAL
     Dates: start: 199908
  4. MODAFINIL [Concomitant]
     Active Substance: MODAFINIL
     Dosage: DOSE : 4.5G FREQUENCY : TWO EQUAL DOSES
     Dates: start: 2007
  5. RITALIN LA [Concomitant]
     Active Substance: METHYLPHENIDATE HYDROCHLORIDE
     Dosage: DOSE : 6G FREQUENCY : TWO EQUAL
     Dates: start: 200006
  6. RITALIN LA [Concomitant]
     Active Substance: METHYLPHENIDATE HYDROCHLORIDE
     Dosage: DOSE : 4.5G FREQUENCY : TWO EQUAL DOSES
     Dates: start: 2007
  7. EFFEXOR XR [Concomitant]
     Active Substance: VENLAFAXINE HYDROCHLORIDE
     Dosage: UNK
     Dates: start: 200203, end: 200906

REACTIONS (1)
  - Knee operation [Unknown]
